FAERS Safety Report 18284359 (Version 2)
Quarter: 2020Q3

REPORT INFORMATION
  Report Type: Spontaneous
  Country: FR (occurrence: FR)
  Receive Date: 20200918
  Receipt Date: 20200928
  Transmission Date: 20201103
  Serious: Yes (Hospitalization)
  Sender: FDA-Public Use
  Company Number: FR-MYLANLABS-2020M1079629

PATIENT
  Age: 84 Year
  Sex: Female

DRUGS (7)
  1. SPIRONOLACTONE. [Suspect]
     Active Substance: SPIRONOLACTONE
     Indication: ENDOTHELIAL DYSFUNCTION
     Dosage: 50 MILLIGRAM, QD
     Route: 048
     Dates: end: 20200811
  2. TERALITHE [Interacting]
     Active Substance: LITHIUM CARBONATE
     Indication: BIPOLAR DISORDER
     Dosage: 400 MILLIGRAM, QD
     Route: 048
  3. VENLAFAXINE [Concomitant]
     Active Substance: VENLAFAXINE HYDROCHLORIDE
     Indication: DEPRESSION
     Dosage: 75 MILLIGRAM, QD
     Route: 048
  4. ESCITALOPRAM [Concomitant]
     Active Substance: ESCITALOPRAM OXALATE
     Indication: DEPRESSION
     Dosage: 20 MILLIGRAM, QD
     Route: 048
     Dates: start: 20200806
  5. ACIDE FOLIQUE [Concomitant]
     Active Substance: FOLIC ACID
     Indication: VITAMIN B COMPLEX DEFICIENCY
     Dosage: 5 MILLIGRAM, QD
     Route: 048
  6. TARDYFERON [Concomitant]
     Active Substance: FERROUS SULFATE
     Indication: VITAMIN B12 DEFICIENCY
     Dosage: 80 MILLIGRAM, QD
  7. LEXOMIL [Concomitant]
     Active Substance: BROMAZEPAM
     Indication: ANXIETY
     Dosage: 1.5 DOSAGE FORM, QD(1/2 LE MATIN ET 1 LE SOIR)
     Route: 048

REACTIONS (5)
  - Cholestasis [Recovered/Resolved]
  - Antipsychotic drug level increased [Recovered/Resolved]
  - Transaminases increased [Recovered/Resolved]
  - Drug interaction [Recovered/Resolved]
  - Acute kidney injury [Recovered/Resolved]

NARRATIVE: CASE EVENT DATE: 20200810
